FAERS Safety Report 24787238 (Version 2)
Quarter: 2025Q1

REPORT INFORMATION
  Report Type: Spontaneous
  Country: US (occurrence: US)
  Receive Date: 20241230
  Receipt Date: 20250109
  Transmission Date: 20250408
  Serious: Yes (Death, Hospitalization, Other)
  Sender: ALEMBIC
  Company Number: US-ALEMBIC PHARMACUETICALS LIMITED-2024SCAL001865

PATIENT

DRUGS (8)
  1. FLUOROURACIL [Suspect]
     Active Substance: FLUOROURACIL
     Indication: Adenocarcinoma of colon
     Route: 040
  2. FLUOROURACIL [Suspect]
     Active Substance: FLUOROURACIL
     Route: 042
  3. OXALIPLATIN [Suspect]
     Active Substance: OXALIPLATIN
     Indication: Adenocarcinoma of colon
     Route: 042
  4. LEUCOVORIN [Suspect]
     Active Substance: LEUCOVORIN\LEUCOVORIN CALCIUM
     Indication: Adenocarcinoma of colon
     Route: 065
  5. PIPERACILLIN AND TAZOBACTAM [Concomitant]
     Active Substance: PIPERACILLIN SODIUM\TAZOBACTAM SODIUM
     Indication: Antibiotic prophylaxis
     Route: 065
  6. HYDROMORPHONE [Concomitant]
     Active Substance: HYDROMORPHONE
     Indication: Product used for unknown indication
     Route: 065
  7. INSULIN NOS [Concomitant]
     Active Substance: INSULIN NOS
     Indication: Product used for unknown indication
     Route: 065
  8. SODIUM BICARBONATE [Concomitant]
     Active Substance: SODIUM BICARBONATE
     Indication: Product used for unknown indication
     Route: 065

REACTIONS (38)
  - Multiple organ dysfunction syndrome [Unknown]
  - Neutropenic colitis [Unknown]
  - Atrial fibrillation [Unknown]
  - Colitis [Unknown]
  - Hypoxia [Unknown]
  - Middle cerebral artery stroke [Unknown]
  - Acute respiratory distress syndrome [Unknown]
  - Renal failure [Unknown]
  - Bradycardia [Fatal]
  - Gastrointestinal toxicity [Unknown]
  - Epigastric discomfort [None]
  - Oesophageal wall hypertrophy [Unknown]
  - Hypernatraemia [Unknown]
  - Blood lactic acid increased [Unknown]
  - Blood creatinine increased [None]
  - International normalised ratio increased [Unknown]
  - Blood phosphorus decreased [Unknown]
  - Blood albumin decreased [None]
  - Heart rate increased [Unknown]
  - Sepsis [Fatal]
  - Pleural effusion [Unknown]
  - Lung consolidation [Unknown]
  - Lymphadenopathy [Unknown]
  - Atelectasis [Unknown]
  - Cardiac arrest [Fatal]
  - Gastrointestinal wall thickening [Unknown]
  - Iliac artery disease [Unknown]
  - Renal infarct [Unknown]
  - Splenic infarction [Unknown]
  - Bacteraemia [Unknown]
  - Fatigue [None]
  - Toxicity to various agents [Fatal]
  - Myelosuppression [Unknown]
  - Nausea [Unknown]
  - Neutropenia [Unknown]
  - Vomiting [Unknown]
  - Mucosal inflammation [None]
  - Pancytopenia [Unknown]
